FAERS Safety Report 20091690 (Version 4)
Quarter: 2022Q1

REPORT INFORMATION
  Report Type: Spontaneous
  Country: US (occurrence: None)
  Receive Date: 20211119
  Receipt Date: 20220113
  Transmission Date: 20220423
  Serious: Yes (Hospitalization)
  Sender: FDA-Public Use
  Company Number: 2021A808836

PATIENT
  Sex: Female

DRUGS (1)
  1. FASENRA [Suspect]
     Active Substance: BENRALIZUMAB
     Indication: Off label use
     Dosage: 30.0MG UNKNOWN
     Route: 058

REACTIONS (5)
  - Cerebrovascular accident [Unknown]
  - Eosinophil count increased [Unknown]
  - Urinary tract infection [Unknown]
  - Product dose omission issue [Unknown]
  - Off label use [Unknown]
